FAERS Safety Report 7210491-9 (Version None)
Quarter: 2011Q1

REPORT INFORMATION
  Report Type: 
  Country: None (occurrence: None)
  Receive Date: 20110105
  Receipt Date: 20101227
  Transmission Date: 20110831
  Serious: No
  Sender: FDA-Public Use
  Company Number: US-ROXANE LABORATORIES, INC.-2010-RO-01460RO

PATIENT
  Sex: Male

DRUGS (1)
  1. FLUTICASONE PROPIONATE [Suspect]
     Indication: RHINITIS ALLERGIC
     Route: 045

REACTIONS (6)
  - DRUG INEFFECTIVE [None]
  - NASAL OEDEMA [None]
  - APPLICATION SITE PAIN [None]
  - INCREASED BRONCHIAL SECRETION [None]
  - LIP OEDEMA [None]
  - VOMITING [None]
